FAERS Safety Report 19956744 (Version 9)
Quarter: 2023Q1

REPORT INFORMATION
  Report Type: Spontaneous
  Country: JP (occurrence: JP)
  Receive Date: 20211014
  Receipt Date: 20230310
  Transmission Date: 20230418
  Serious: Yes (Hospitalization, Other)
  Sender: FDA-Public Use
  Company Number: JP-SAKK-2021SA334940AA

PATIENT
  Age: 1 Year
  Sex: Male

DRUGS (24)
  1. SABRIL [Suspect]
     Active Substance: VIGABATRIN
     Indication: Infantile spasms
     Dosage: DAILY DOSE: 1500 MG, TWICE A DAY
     Route: 048
     Dates: start: 20210812, end: 20211008
  2. SABRIL [Suspect]
     Active Substance: VIGABATRIN
     Dosage: DAILY DOSE: 500 MG, TWICE A DAY
     Route: 048
     Dates: start: 20210701, end: 20210712
  3. SABRIL [Suspect]
     Active Substance: VIGABATRIN
     Dosage: DAILY DOSE: 1000 MG, TWICE A DAY
     Route: 048
     Dates: start: 20210713, end: 20210811
  4. SABRIL [Suspect]
     Active Substance: VIGABATRIN
     Dosage: DAILY DOSE: 550 MG, TWICE A DAY
     Route: 048
     Dates: start: 20211011, end: 20211013
  5. SABRIL [Suspect]
     Active Substance: VIGABATRIN
     Dosage: DAILY DOSE: 1000 MG, TWICE A DAY
     Route: 048
     Dates: start: 20211014, end: 20211110
  6. SABRIL [Suspect]
     Active Substance: VIGABATRIN
     Dosage: DAILY DOSE: 500 MG, TWICE A DAY
     Route: 048
     Dates: start: 20211111, end: 20211124
  7. SABRIL [Suspect]
     Active Substance: VIGABATRIN
     Dosage: DAILY DOSE: 1000 MG, TWICE A DAY
     Route: 048
     Dates: start: 20211125, end: 20220211
  8. SABRIL [Suspect]
     Active Substance: VIGABATRIN
     Dosage: DAILY DOSE: 750 MG, TWICE A DAY
     Route: 048
     Dates: start: 20220212, end: 20220227
  9. SABRIL [Suspect]
     Active Substance: VIGABATRIN
     Dosage: DAILY DOSE: 500 MG, TWICE A DAY
     Route: 048
     Dates: start: 20220228, end: 20220327
  10. SABRIL [Suspect]
     Active Substance: VIGABATRIN
     Dosage: DAILY DOSE: 250 MG, TWICE A DAY
     Route: 048
     Dates: start: 20220328, end: 20220419
  11. VALPROATE SODIUM [Concomitant]
     Active Substance: VALPROATE SODIUM
     Indication: Infantile spasms
     Dosage: DAILY DOSE: 300 MG
     Route: 048
  12. VALPROATE SODIUM [Concomitant]
     Active Substance: VALPROATE SODIUM
     Dosage: DAILY DOSE: 270 MG
     Route: 048
  13. VALPROATE SODIUM [Concomitant]
     Active Substance: VALPROATE SODIUM
     Dosage: DAILY DOSE: 290 MG
     Route: 048
     Dates: start: 20211125, end: 20211125
  14. LEVOCARNITINE [Concomitant]
     Active Substance: LEVOCARNITINE
     Indication: Product used for unknown indication
     Dosage: DAILY DOSE: 6 ML
     Route: 048
  15. ZONISAMIDE [Concomitant]
     Active Substance: ZONISAMIDE
     Indication: Infantile spasms
     Dosage: DAILY DOSE: 45 MG
     Route: 048
     Dates: end: 20210609
  16. ZONISAMIDE [Concomitant]
     Active Substance: ZONISAMIDE
     Dosage: DAILY DOSE: 60 MG
     Route: 048
     Dates: start: 20210610, end: 20210615
  17. ZONISAMIDE [Concomitant]
     Active Substance: ZONISAMIDE
     Dosage: DAILY DOSE: 80 MG
     Route: 048
     Dates: start: 20210616, end: 20210630
  18. ZONISAMIDE [Concomitant]
     Active Substance: ZONISAMIDE
     Dosage: DAILY DOSE: 50 MG
     Route: 048
     Dates: start: 20210701, end: 20210713
  19. ZONISAMIDE [Concomitant]
     Active Substance: ZONISAMIDE
     Dosage: DAILY DOSE: 25 MG
     Route: 048
     Dates: start: 20210714, end: 20210727
  20. MINIRIN [Concomitant]
     Active Substance: DESMOPRESSIN ACETATE
     Indication: Hypopituitarism
     Dosage: DAILY DOSE: 30 UG
     Route: 048
  21. CORTRIL [Concomitant]
     Active Substance: HYDROCORTISONE
     Indication: Hypopituitarism
     Dosage: DAILY DOSE: 3.6 MG
     Route: 048
  22. CORTRIL [Concomitant]
     Active Substance: HYDROCORTISONE
     Dosage: DAILY DOSE: 4.0 MG
     Route: 048
  23. TIZANIDINE [Concomitant]
     Active Substance: TIZANIDINE
     Indication: Product used for unknown indication
     Dosage: DAILY DOSE: 0.45 MG
     Route: 048
  24. TIZANIDINE [Concomitant]
     Active Substance: TIZANIDINE
     Dosage: DAILY DOSE: 0.3 MG
     Route: 048

REACTIONS (4)
  - Joint ankylosis [Recovering/Resolving]
  - Condition aggravated [Recovering/Resolving]
  - Bronchial secretion retention [Unknown]
  - Seizure [Recovering/Resolving]

NARRATIVE: CASE EVENT DATE: 20211001
